FAERS Safety Report 9039200 (Version 1)
Quarter: 2013Q2

REPORT INFORMATION
  Report Type: Spontaneous
  Country: US (occurrence: None)
  Receive Date: 20130123
  Receipt Date: 20130123
  Transmission Date: 20140414
  Serious: Yes (Life-Threatening, Hospitalization, Other)
  Sender: FDA-Public Use
  Company Number: None

PATIENT
  Age: 67 Year
  Sex: Female
  Weight: 68.9 kg

DRUGS (8)
  1. TEMOZOLOMIDE [Suspect]
     Indication: METASTATIC MALIGNANT MELANOMA
     Dosage: 350MG DAYS DAYS 1-5
     Dates: start: 20121107, end: 20121111
  2. ANTIBIOTICS WITH VANCOMYCIN AND CEFEPIME [Concomitant]
  3. RED BLOOD CELLS [Concomitant]
  4. PLATELETS [Concomitant]
  5. FISH OIL [Concomitant]
  6. COMPAZINE [Concomitant]
  7. TUMS [Concomitant]
  8. TYLENOL [Concomitant]

REACTIONS (3)
  - Pancytopenia [None]
  - Febrile neutropenia [None]
  - Sepsis [None]
